FAERS Safety Report 4565546-4 (Version None)
Quarter: 2005Q1

REPORT INFORMATION
  Report Type: 
  Country: None (occurrence: None)
  Receive Date: 20050125
  Receipt Date: 20050125
  Transmission Date: 20050727
  Serious: Yes (Hospitalization)
  Sender: FDA-Public Use
  Company Number: None

PATIENT
  Age: 76 Year
  Sex: Male
  Weight: 68.9467 kg

DRUGS (7)
  1. MEPIVACAINE      1.5% [Suspect]
     Indication: ANAESTHESIA
     Dosage: 60ML    ONCE   SUBCUTANEO
     Route: 058
     Dates: start: 20041228, end: 20041228
  2. EPOGEN [Concomitant]
  3. METOPROLOL [Concomitant]
  4. HYDRALAZINE HCL [Concomitant]
  5. LIPITOR [Concomitant]
  6. IMDUR [Concomitant]
  7. FUROSEMIDE [Concomitant]

REACTIONS (3)
  - ANAESTHETIC COMPLICATION [None]
  - COMA [None]
  - HYPERTENSION [None]
